FAERS Safety Report 6845430-3 (Version None)
Quarter: 2010Q3

REPORT INFORMATION
  Report Type: 
  Country: None (occurrence: None)
  Receive Date: 20100715
  Receipt Date: 20070927
  Transmission Date: 20110219
  Serious: No
  Sender: FDA-Public Use
  Company Number: US-PFIZER INC-2007068610

PATIENT
  Sex: Female
  Weight: 69.9 kg

DRUGS (6)
  1. CHANTIX [Suspect]
     Indication: SMOKING CESSATION THERAPY
     Route: 048
     Dates: start: 20070811, end: 20070901
  2. ESTRATEST [Concomitant]
  3. LIPITOR [Concomitant]
     Indication: BLOOD CHOLESTEROL
  4. FIORICET [Concomitant]
     Indication: MIGRAINE
  5. ALL OTHER THERAPEUTIC PRODUCTS [Concomitant]
     Indication: HOT FLUSH
  6. ANTI-APPETITE FORMULA [Concomitant]

REACTIONS (5)
  - ABNORMAL DREAMS [None]
  - COUGH [None]
  - DYSGEUSIA [None]
  - FATIGUE [None]
  - INSOMNIA [None]
